FAERS Safety Report 12719351 (Version 2)
Quarter: 2016Q4

REPORT INFORMATION
  Report Type: Spontaneous
  Country: US (occurrence: US)
  Receive Date: 20160907
  Receipt Date: 20161014
  Transmission Date: 20170207
  Serious: No
  Sender: FDA-Public Use
  Company Number: US-ASTRAZENECA-2016SE87195

PATIENT
  Sex: Male
  Weight: 103.9 kg

DRUGS (11)
  1. FISH OIL [Concomitant]
     Active Substance: FISH OIL
     Dosage: 2400.0MG UNKNOWN
     Route: 048
  2. GEMFIBROZIL. [Concomitant]
     Active Substance: GEMFIBROZIL
     Indication: DIABETES MELLITUS
     Dosage: 600.0MG UNKNOWN
     Route: 048
  3. VITAMIN C [Concomitant]
     Active Substance: ASCORBIC ACID
     Route: 048
  4. CALCIUM [Concomitant]
     Active Substance: CALCIUM
     Route: 048
  5. LISINOPRIL. [Suspect]
     Active Substance: LISINOPRIL
     Route: 048
  6. METFORMIN [Concomitant]
     Active Substance: METFORMIN HYDROCHLORIDE
     Indication: DIABETES MELLITUS
     Dosage: 1000.0MG UNKNOWN
  7. BYDUREON [Suspect]
     Active Substance: EXENATIDE
     Indication: DIABETES MELLITUS
     Route: 058
     Dates: start: 20150224
  8. ASPRIN [Concomitant]
     Active Substance: ASPIRIN
     Dosage: 3.25, AT NIGHT
     Route: 048
     Dates: start: 2004
  9. MULTIVIATMIN [Concomitant]
     Route: 048
  10. PROVASTATIN [Concomitant]
     Route: 048
  11. GLIMEPIRIDE. [Concomitant]
     Active Substance: GLIMEPIRIDE
     Indication: DIABETES MELLITUS
     Dosage: 4.0MG UNKNOWN
     Route: 048

REACTIONS (4)
  - Injection site mass [Not Recovered/Not Resolved]
  - Circumstance or information capable of leading to medication error [Unknown]
  - Glycosylated haemoglobin increased [Unknown]
  - Device malfunction [Unknown]
